FAERS Safety Report 4585273-7 (Version None)
Quarter: 2005Q1

REPORT INFORMATION
  Report Type: 
  Country: None (occurrence: None)
  Receive Date: 20050214
  Receipt Date: 20050203
  Transmission Date: 20050727
  Serious: Yes (Other)
  Sender: FDA-Public Use
  Company Number: 2005025195

PATIENT
  Sex: Male
  Weight: 77.1115 kg

DRUGS (6)
  1. ATORVASTATIN (ATORVASTATIN) [Suspect]
     Dosage: 10 MG (10 MG , 1 IN 1 D), ORAL
     Route: 048
  2. CLONAZEPAM [Concomitant]
  3. ZOLPIDEM TARTRATE [Concomitant]
  4. LOTREL [Concomitant]
  5. HYDROCHLOROTHIAZIDE [Concomitant]
  6. METOPROLOL SUCCINATE (METOPROLOL SUCCIANTE) [Concomitant]

REACTIONS (6)
  - ARTHRALGIA [None]
  - BACK PAIN [None]
  - BONE PAIN [None]
  - CORONARY ARTERY OCCLUSION [None]
  - MYOCARDIAL INFARCTION [None]
  - PAIN IN EXTREMITY [None]
